FAERS Safety Report 5766829-2 (Version None)
Quarter: 2008Q2

REPORT INFORMATION
  Report Type: 
  Country: None (occurrence: None)
  Receive Date: 20080609
  Receipt Date: 20080530
  Transmission Date: 20081010
  Serious: Yes (Hospitalization)
  Sender: FDA-Public Use
  Company Number: 2008SP010385

PATIENT
  Age: 77 Year
  Sex: Male
  Weight: 69 kg

DRUGS (8)
  1. TEMODAL [Suspect]
     Indication: GASTROINTESTINAL CARCINOMA
     Dosage: 270 MG, QD;
     Dates: start: 20080510, end: 20080516
  2. TEMODAL [Suspect]
     Indication: MALIGNANT RESPIRATORY TRACT NEOPLASM
     Dosage: 270 MG, QD;
     Dates: start: 20080510, end: 20080516
  3. TEMODAL [Suspect]
     Indication: GASTROINTESTINAL CARCINOMA
     Dosage: 270 MG, QD;
     Dates: start: 20080524
  4. TEMODAL [Suspect]
     Indication: MALIGNANT RESPIRATORY TRACT NEOPLASM
     Dosage: 270 MG, QD;
     Dates: start: 20080524
  5. ACETYLSALISYRYRA [Concomitant]
  6. BISOPROLOL FUMARATE [Concomitant]
  7. ATORVASTATIN [Concomitant]
  8. LANSOPRAZOL [Concomitant]

REACTIONS (4)
  - FATIGUE [None]
  - GASTROINTESTINAL HAEMORRHAGE [None]
  - HAEMOGLOBIN DECREASED [None]
  - VERTIGO [None]
